FAERS Safety Report 13011602 (Version 1)
Quarter: 2016Q4

REPORT INFORMATION
  Report Type: Spontaneous
  Country: US (occurrence: US)
  Receive Date: 20161209
  Receipt Date: 20161209
  Transmission Date: 20170207
  Serious: No
  Sender: FDA-Public Use
  Company Number: US-JNJFOC-20161020240

PATIENT
  Age: 77 Year
  Sex: Male
  Weight: 68.04 kg

DRUGS (2)
  1. IMODIUM A-D [Suspect]
     Active Substance: LOPERAMIDE HYDROCHLORIDE
     Indication: HAIR GROWTH ABNORMAL
     Dosage: NICKLE SIZE??1/4 AMOUNT
     Route: 061
  2. IMODIUM A-D [Suspect]
     Active Substance: LOPERAMIDE HYDROCHLORIDE
     Route: 061

REACTIONS (2)
  - Incorrect route of drug administration [Unknown]
  - Intentional product misuse [Unknown]
